FAERS Safety Report 18319255 (Version 1)
Quarter: 2020Q3

REPORT INFORMATION
  Report Type: Spontaneous
  Country: DK (occurrence: DK)
  Receive Date: 20200928
  Receipt Date: 20200928
  Transmission Date: 20201103
  Serious: Yes (Other)
  Sender: FDA-Public Use
  Company Number: NVSC2020DK257544

PATIENT
  Age: 74 Year
  Sex: Female
  Weight: 79 kg

DRUGS (7)
  1. GLIVEC [Suspect]
     Active Substance: IMATINIB MESYLATE
     Indication: GASTROINTESTINAL STROMAL TUMOUR
     Dosage: 400 MG, QD
     Route: 048
     Dates: start: 20200703
  2. LOSARTANKALIUM [Concomitant]
     Active Substance: LOSARTAN
     Indication: HYPERTENSION
     Dosage: 50 MG, QD
     Route: 048
     Dates: start: 20200121
  3. METOPROLOL TARTRATE. [Concomitant]
     Active Substance: METOPROLOL TARTRATE
     Indication: MIGRAINE
     Dosage: 12.5 MG, QD
     Route: 048
     Dates: start: 20161206
  4. VIVELLE?DOT [Concomitant]
     Active Substance: ESTRADIOL
     Indication: HORMONE THERAPY
     Dosage: 2 DF, QD (STRENGTH: 50 MICROGRAM/24 HOURS)
     Route: 003
     Dates: start: 20161206
  5. PNEUMOVAX 23 [Suspect]
     Active Substance: PNEUMOCOCCAL VACCINE, POLYVALENT 23
     Indication: PNEUMOCOCCAL IMMUNISATION
     Dosage: 1 DF
     Route: 030
     Dates: start: 20200909
  6. CENTYL MED KALIUMKLORID [Concomitant]
     Active Substance: BENDROFLUMETHIAZIDE\POTASSIUM CHLORIDE
     Indication: HYPERTENSION
     Dosage: 1 DF, QD
     Route: 048
     Dates: start: 20161206
  7. PANTOPRAZOL [Concomitant]
     Active Substance: PANTOPRAZOLE SODIUM
     Indication: GASTRIC PH DECREASED
     Dosage: 40 MG, PRN
     Route: 048
     Dates: start: 20200225

REACTIONS (6)
  - Feeling hot [Recovering/Resolving]
  - Vaccination site swelling [Recovering/Resolving]
  - Vaccination site warmth [Recovering/Resolving]
  - Vaccination site erythema [Recovering/Resolving]
  - Malaise [Recovering/Resolving]
  - Syncope [Recovering/Resolving]

NARRATIVE: CASE EVENT DATE: 20200909
